FAERS Safety Report 9468565 (Version 1)
Quarter: 2013Q3

REPORT INFORMATION
  Report Type: Report from Study
  Country: GB (occurrence: GB)
  Receive Date: 20130821
  Receipt Date: 20130821
  Transmission Date: 20140515
  Serious: Yes (Death)
  Sender: FDA-Public Use
  Company Number: GB-GLAXOSMITHKLINE-B0914985A

PATIENT
  Age: 84 Year
  Sex: Male

DRUGS (1)
  1. DABRAFENIB [Suspect]
     Indication: METASTATIC MALIGNANT MELANOMA
     Dosage: 150MG TWICE PER DAY
     Route: 048
     Dates: start: 20130523

REACTIONS (4)
  - Sudden death [Fatal]
  - Abdominal discomfort [Unknown]
  - Circulatory collapse [Unknown]
  - Aortic aneurysm rupture [Unknown]
